FAERS Safety Report 16580068 (Version 4)
Quarter: 2019Q3

REPORT INFORMATION
  Report Type: Spontaneous
  Country: DE (occurrence: DE)
  Receive Date: 20190716
  Receipt Date: 20190830
  Transmission Date: 20191004
  Serious: Yes (Disabling, Other)
  Sender: FDA-Public Use
  Company Number: DE-AMGEN-DEUSP2019110280

PATIENT
  Age: 62 Year
  Sex: Female
  Weight: 60 kg

DRUGS (3)
  1. DEKRISTOLVIT D3 [Concomitant]
     Dosage: 20 UNK, QWK
  2. PROLIA [Suspect]
     Active Substance: DENOSUMAB
     Indication: BONE DENSITY DECREASED
  3. PROLIA [Suspect]
     Active Substance: DENOSUMAB
     Indication: THORACIC VERTEBRAL FRACTURE
     Dosage: 60 MILLIGRAM, Q6MO
     Route: 058
     Dates: start: 20100730, end: 20120731

REACTIONS (4)
  - Renal failure [Recovered/Resolved]
  - Abdominal discomfort [Unknown]
  - Thoracic vertebral fracture [Not Recovered/Not Resolved]
  - Sleep disorder due to a general medical condition [Unknown]

NARRATIVE: CASE EVENT DATE: 20131017
